FAERS Safety Report 4636270-4 (Version None)
Quarter: 2005Q2

REPORT INFORMATION
  Report Type: 
  Country: None (occurrence: None)
  Receive Date: 20050415
  Receipt Date: 20040505
  Transmission Date: 20051028
  Serious: Yes (Other)
  Sender: FDA-Public Use
  Company Number: US-BRISTOL-MYERS SQUIBB COMPANY-12579751

PATIENT
  Age: 46 Year
  Sex: Female

DRUGS (4)
  1. CARBOPLATIN [Suspect]
     Indication: LUNG NEOPLASM MALIGNANT
     Dosage: THERAPY DATES: 18-MAR TO 04-MAY-2004
     Route: 042
     Dates: start: 20040504, end: 20040504
  2. KYTRIL [Concomitant]
     Indication: PREMEDICATION
     Route: 048
     Dates: start: 20040504, end: 20040504
  3. ZANTAC [Concomitant]
     Indication: PREMEDICATION
     Route: 042
     Dates: start: 20040504, end: 20040504
  4. BENADRYL [Concomitant]
     Indication: PREMEDICATION
     Route: 042
     Dates: start: 20040504, end: 20040504

REACTIONS (5)
  - ABDOMINAL PAIN [None]
  - BRONCHOSPASM [None]
  - COUGH [None]
  - DIARRHOEA [None]
  - VOMITING [None]
